FAERS Safety Report 7738441 (Version 2)
Quarter: 2012Q4

REPORT INFORMATION
  Report Type: 
  Country: US (occurrence: US)
  Receive Date: 20101223
  Receipt Date: 20121023
  Transmission Date: 20130627
  Serious: Yes (Other)
  Sender: FDA-Public Use
  Company Number: US-AMGEN-USASP2010000129

PATIENT
  Age: 63 Year
  Sex: Female

DRUGS (4)
  1. ENBREL [Suspect]
     Indication: RHEUMATOID ARTHRITIS
     Route: 065
     Dates: start: 20100917
  2. METHOTREXATE [Suspect]
     Dosage: UNK
  3. TREXALL [Concomitant]
     Dosage: 1 mg, qwk
     Route: 065
     Dates: start: 201007
  4. HUMIRA [Concomitant]
     Dosage: UNK

REACTIONS (7)
  - Pneumonia [Unknown]
  - Nausea [Not Recovered/Not Resolved]
  - Upper respiratory tract congestion [Unknown]
  - Nasal congestion [Not Recovered/Not Resolved]
  - Cough [Not Recovered/Not Resolved]
  - Sneezing [Not Recovered/Not Resolved]
  - Drug ineffective [Unknown]
